FAERS Safety Report 10276517 (Version 1)
Quarter: 2014Q3

REPORT INFORMATION
  Report Type: Report from Study
  Country: US (occurrence: US)
  Receive Date: 20140703
  Receipt Date: 20140703
  Transmission Date: 20150326
  Serious: Yes (Hospitalization)
  Sender: FDA-Public Use
  Company Number: US-ABBVIE-14P-163-1253565-00

PATIENT
  Age: 47 Year
  Sex: Female

DRUGS (1)
  1. HUMIRA [Suspect]
     Active Substance: ADALIMUMAB
     Indication: RHEUMATOID ARTHRITIS
     Dates: start: 201401, end: 20140626

REACTIONS (3)
  - Hypoaesthesia [Recovering/Resolving]
  - Hepatic enzyme increased [Unknown]
  - Migraine [Recovering/Resolving]

NARRATIVE: CASE EVENT DATE: 201406
